FAERS Safety Report 4877910-4 (Version None)
Quarter: 2006Q1

REPORT INFORMATION
  Report Type: 
  Country: None (occurrence: None)
  Receive Date: 20060110
  Receipt Date: 20060103
  Transmission Date: 20060701
  Serious: Yes (Hospitalization)
  Sender: FDA-Public Use
  Company Number: 2006002312

PATIENT
  Age: 30 Year
  Sex: Female

DRUGS (5)
  1. PREGABALIN (PREGABALIN) [Suspect]
     Indication: COMPLEX REGIONAL PAIN SYNDROME
     Dosage: 300 MG (150 MG, 2 IN 1 D), ORAL
     Route: 048
     Dates: start: 20050919, end: 20051010
  2. GABAPENTIN [Concomitant]
  3. MORPHINE [Concomitant]
  4. HYOSCINE HBR HYT [Concomitant]
  5. CITALOPRAM (CITALOPRAM) [Concomitant]

REACTIONS (1)
  - OEDEMA PERIPHERAL [None]
